FAERS Safety Report 14668704 (Version 1)
Quarter: 2018Q1

REPORT INFORMATION
  Report Type: Spontaneous
  Country: US (occurrence: US)
  Receive Date: 20180321
  Receipt Date: 20180321
  Transmission Date: 20180509
  Serious: Yes (Hospitalization)
  Sender: FDA-Public Use
  Company Number: None

PATIENT
  Age: 93 Year
  Sex: Male
  Weight: 55.2 kg

DRUGS (6)
  1. VITAMIN C 1000 MG DAILY [Concomitant]
  2. LISINOPRIL 5 MG DAILY [Concomitant]
  3. METOPROLOL 50 MG DAILY [Concomitant]
  4. FERROUS SULFATE 325 MG 2 TIMES WEEKLY [Concomitant]
  5. RIVARXABAN [Suspect]
     Active Substance: RIVAROXABAN
     Indication: ATRIAL FIBRILLATION
     Route: 048
  6. LASIX 40 MG DAILY [Concomitant]

REACTIONS (1)
  - Pulmonary embolism [None]

NARRATIVE: CASE EVENT DATE: 20171228
